FAERS Safety Report 23733717 (Version 4)
Quarter: 2024Q2

REPORT INFORMATION
  Report Type: Report from Study
  Country: GR (occurrence: GR)
  Receive Date: 20240411
  Receipt Date: 20240614
  Transmission Date: 20240716
  Serious: Yes (Death, Hospitalization, Other)
  Sender: FDA-Public Use
  Company Number: GR-ABBVIE-5712292

PATIENT
  Sex: Female

DRUGS (2)
  1. CARBIDOPA\LEVODOPA [Suspect]
     Active Substance: CARBIDOPA\LEVODOPA
     Indication: Parkinson^s disease
     Dosage: MORNING DOSE: 12.0ML; CONTINUOUS RATE: 2.8ML/H; EXTRA DOSE: 1.7ML
     Route: 050
     Dates: start: 20180912
  2. CARBIDOPA\LEVODOPA [Suspect]
     Active Substance: CARBIDOPA\LEVODOPA
     Dosage: MORNING DOSE: 11.5ML; CONTINUOUS RATE: 3.2ML/H; EXTRA DOSE: 1.7ML
     Route: 050

REACTIONS (4)
  - Death [Fatal]
  - Urinary tract infection [Unknown]
  - Parkinson^s disease [Unknown]
  - Pulmonary embolism [Unknown]

NARRATIVE: CASE EVENT DATE: 20240101
